FAERS Safety Report 19167618 (Version 1)
Quarter: 2021Q2

REPORT INFORMATION
  Report Type: Spontaneous
  Country: US (occurrence: US)
  Receive Date: 20210421
  Receipt Date: 20210421
  Transmission Date: 20210717
  Serious: Yes (Other)
  Sender: FDA-Public Use
  Company Number: None

PATIENT
  Sex: Female

DRUGS (1)
  1. BUPRENORPHINE HCL/NALOXONE HCL [Suspect]
     Active Substance: BUPRENORPHINE\NALOXONE
     Indication: DRUG DEPENDENCE
     Route: 060

REACTIONS (6)
  - Glossodynia [None]
  - Pruritus [None]
  - Nausea [None]
  - Pain in jaw [None]
  - Hypoaesthesia oral [None]
  - Paraesthesia oral [None]
